FAERS Safety Report 8487907-3 (Version None)
Quarter: 2012Q3

REPORT INFORMATION
  Report Type: 
  Country: None (occurrence: None)
  Receive Date: 20120705
  Receipt Date: 20120628
  Transmission Date: 20120928
  Serious: Yes (Other)
  Sender: FDA-Public Use
  Company Number: JP-PFIZER INC-2012156237

PATIENT

DRUGS (1)
  1. CADUET [Suspect]
     Dosage: UNK
     Route: 048

REACTIONS (1)
  - SHOCK [None]
